FAERS Safety Report 9387210 (Version 1)
Quarter: 2013Q3

REPORT INFORMATION
  Report Type: Spontaneous
  Country: US (occurrence: US)
  Receive Date: 20130708
  Receipt Date: 20130708
  Transmission Date: 20140515
  Serious: Yes (Other)
  Sender: FDA-Public Use
  Company Number: US-BAYER-2013-080702

PATIENT
  Sex: 0

DRUGS (1)
  1. MIDOL EXTENDED RELIEF CAPLET [Suspect]
     Dosage: 3 DF, ONCE

REACTIONS (10)
  - Paraesthesia [None]
  - Sensation of heaviness [None]
  - Hypoaesthesia [None]
  - Muscle spasms [None]
  - Pain [None]
  - Blood potassium decreased [None]
  - Dizziness [None]
  - Vomiting [None]
  - Nausea [None]
  - Inappropriate schedule of drug administration [None]
